FAERS Safety Report 7864197-3 (Version None)
Quarter: 2011Q4

REPORT INFORMATION
  Report Type: 
  Country: None (occurrence: None)
  Receive Date: 20111028
  Receipt Date: 20111025
  Transmission Date: 20120403
  Serious: Yes (Other)
  Sender: FDA-Public Use
  Company Number: US-PFIZER INC-2008056825

PATIENT
  Sex: Female

DRUGS (9)
  1. ASPIRIN [Concomitant]
  2. SERTRALINE HYDROCHLORIDE [Concomitant]
  3. PROTONIX [Suspect]
  4. VASOTEC [Concomitant]
     Indication: HYPERTENSION
  5. XANAX [Suspect]
  6. NITROSTAT [Suspect]
  7. CARDIZEM [Concomitant]
     Indication: HYPERTENSION
  8. LIPITOR [Suspect]
     Indication: CARDIAC DISORDER
     Route: 048
  9. PLAVIX [Concomitant]
     Dosage: 75 MG, UNK

REACTIONS (8)
  - FATIGUE [None]
  - MACULAR DEGENERATION [None]
  - EYE OPERATION [None]
  - STRESS [None]
  - FEAR [None]
  - PHARYNGEAL MASS [None]
  - VISUAL ACUITY REDUCED [None]
  - CATARACT [None]
